FAERS Safety Report 22101000 (Version 2)
Quarter: 2023Q1

REPORT INFORMATION
  Report Type: Spontaneous
  Country: US (occurrence: US)
  Receive Date: 20230316
  Receipt Date: 20230316
  Transmission Date: 20230418
  Serious: No
  Sender: FDA-Public Use
  Company Number: ENDG23-00255

PATIENT
  Age: 73 Year
  Sex: Male
  Weight: 88.435 kg

DRUGS (7)
  1. EPHEDRINE SULFATE [Suspect]
     Active Substance: EPHEDRINE SULFATE
     Indication: Procedural hypotension
     Dosage: 10 MG, PRN
     Route: 042
     Dates: start: 20221208
  2. EPHEDRINE SULFATE [Suspect]
     Active Substance: EPHEDRINE SULFATE
     Dosage: 10 MG, PRN
     Route: 042
     Dates: start: 20221208
  3. EPHEDRINE SULFATE [Suspect]
     Active Substance: EPHEDRINE SULFATE
     Dosage: 10 MG, PRN
     Route: 042
     Dates: start: 20221208
  4. METOPROLOL TARTRATE [Concomitant]
     Active Substance: METOPROLOL TARTRATE
     Indication: Product used for unknown indication
     Dosage: 25 MG (HALF TABLET), OD
     Route: 048
     Dates: start: 20221208
  5. LEVOTHYROXINE SODIUM [Concomitant]
     Active Substance: LEVOTHYROXINE SODIUM
     Indication: Product used for unknown indication
     Dosage: 25 ?G, OD
     Route: 048
     Dates: start: 20221208
  6. OMEPRAZOLE [Concomitant]
     Active Substance: OMEPRAZOLE
     Indication: Product used for unknown indication
     Dosage: 20 MG, OD
     Route: 048
     Dates: start: 20221208
  7. BUPROPION [Concomitant]
     Active Substance: BUPROPION
     Indication: Product used for unknown indication
     Dosage: 300 MG, OD
     Route: 048
     Dates: start: 20221208

REACTIONS (1)
  - Drug ineffective [Recovered/Resolved]

NARRATIVE: CASE EVENT DATE: 20221208
